FAERS Safety Report 17755526 (Version 1)
Quarter: 2020Q2

REPORT INFORMATION
  Report Type: Report from Study
  Country: US (occurrence: US)
  Receive Date: 20200507
  Receipt Date: 20200507
  Transmission Date: 20200714
  Serious: Yes (Death)
  Sender: FDA-Public Use
  Company Number: US-ASTRAZENECA-2020SE59912

PATIENT
  Sex: Male
  Weight: 77.1 kg

DRUGS (9)
  1. LUNTUS [Concomitant]
  2. NIFEDIPINE. [Concomitant]
     Active Substance: NIFEDIPINE
  3. CALQUENCE [Suspect]
     Active Substance: ACALABRUTINIB
     Indication: MANTLE CELL LYMPHOMA
     Route: 048
     Dates: start: 20180606, end: 20200504
  4. IMBRUVICA [Concomitant]
     Active Substance: IBRUTINIB
  5. VITAMIN C [Concomitant]
     Active Substance: ASCORBIC ACID
  6. TRAMADOL. [Concomitant]
     Active Substance: TRAMADOL
  7. NOVOLOG [Concomitant]
     Active Substance: INSULIN ASPART
  8. RITUXAN [Concomitant]
     Active Substance: RITUXIMAB
  9. FINASTERIDE. [Concomitant]
     Active Substance: FINASTERIDE

REACTIONS (1)
  - Death [Fatal]
